FAERS Safety Report 25682089 (Version 1)
Quarter: 2025Q3

REPORT INFORMATION
  Report Type: Spontaneous
  Country: US (occurrence: None)
  Receive Date: 20250814
  Receipt Date: 20250814
  Transmission Date: 20251021
  Serious: No
  Sender: FDA-CTU
  Company Number: None

PATIENT

DRUGS (1)
  1. AVONEX [Suspect]
     Active Substance: INTERFERON BETA-1A

REACTIONS (4)
  - Condition aggravated [None]
  - Influenza like illness [None]
  - Anxiety [None]
  - Fear of injection [None]

NARRATIVE: CASE EVENT DATE: 20250813
